FAERS Safety Report 9693965 (Version 2)
Quarter: 2013Q4

REPORT INFORMATION
  Report Type: Spontaneous
  Country: US (occurrence: US)
  Receive Date: 20131118
  Receipt Date: 20131209
  Transmission Date: 20140711
  Serious: No
  Sender: FDA-Public Use
  Company Number: US-009507513-1311USA002585

PATIENT
  Age: 23 Year
  Sex: Female

DRUGS (1)
  1. DULERA [Suspect]
     Indication: RESPIRATION ABNORMAL
     Dosage: 1 PUFF BID
     Route: 055
     Dates: start: 201211

REACTIONS (3)
  - Respiration abnormal [Not Recovered/Not Resolved]
  - Drug dose omission [Unknown]
  - Product quality issue [Unknown]
